FAERS Safety Report 18315239 (Version 3)
Quarter: 2020Q4

REPORT INFORMATION
  Report Type: Spontaneous
  Country: US (occurrence: US)
  Receive Date: 20200926
  Receipt Date: 20201003
  Transmission Date: 20210113
  Serious: No
  Sender: FDA-Public Use
  Company Number: US-SA-2020SA263226

PATIENT

DRUGS (2)
  1. CLEXANE [Suspect]
     Active Substance: ENOXAPARIN SODIUM
     Dosage: UNK
     Route: 065
  2. NA [Concomitant]
     Active Substance: SODIUM
     Dosage: UNK

REACTIONS (2)
  - Haematoma [Unknown]
  - Needle issue [Unknown]

NARRATIVE: CASE EVENT DATE: 20200923
